FAERS Safety Report 7344840-8 (Version None)
Quarter: 2011Q1

REPORT INFORMATION
  Report Type: 
  Country: None (occurrence: None)
  Receive Date: 20110310
  Receipt Date: 20110306
  Transmission Date: 20110831
  Serious: Yes (Other)
  Sender: FDA-Public Use
  Company Number: US-PFIZER INC-2011050417

PATIENT

DRUGS (1)
  1. CHANTIX [Suspect]

REACTIONS (2)
  - HYPERSENSITIVITY [None]
  - BLISTER [None]
